FAERS Safety Report 13949887 (Version 2)
Quarter: 2017Q3

REPORT INFORMATION
  Report Type: Spontaneous
  Country: US (occurrence: US)
  Receive Date: 20170908
  Receipt Date: 20170915
  Transmission Date: 20171128
  Serious: Yes (Death)
  Sender: FDA-Public Use
  Company Number: US-BAYER-2017-168532

PATIENT
  Age: 21 Year
  Sex: Male

DRUGS (5)
  1. CHLORPHENIRAMINE MALEATE. [Suspect]
     Active Substance: CHLORPHENIRAMINE MALEATE
  2. DEXTROMETHORPHAN [DEXTROMETHORPHAN] [Suspect]
     Active Substance: DEXTROMETHORPHAN
     Dosage: UNK
  3. DEXTROMETHORPHAN [DEXTROMETHORPHAN] [Suspect]
     Active Substance: DEXTROMETHORPHAN
     Dosage: UNK
  4. NALOXONE [Suspect]
     Active Substance: NALOXONE
  5. TETRAHYDROCANNABINOL [Suspect]
     Active Substance: DRONABINOL
     Dosage: UNK

REACTIONS (1)
  - Toxicity to various agents [Fatal]
